FAERS Safety Report 8261032-9 (Version None)
Quarter: 2012Q2

REPORT INFORMATION
  Report Type: 
  Country: None (occurrence: None)
  Receive Date: 20120405
  Receipt Date: 20120402
  Transmission Date: 20120825
  Serious: Yes (Hospitalization)
  Sender: FDA-Public Use
  Company Number: US-PFIZER INC-2012056986

PATIENT
  Sex: Male
  Weight: 81.6 kg

DRUGS (4)
  1. SUTENT [Suspect]
     Dosage: 50 MG, ONCE DAILY
     Route: 048
     Dates: start: 20120201, end: 20120301
  2. SUTENT [Suspect]
     Indication: RENAL CELL CARCINOMA
     Dosage: 50 MG, DAILY
     Route: 048
     Dates: start: 20120201, end: 20120224
  3. FINASTERIDE [Concomitant]
     Indication: PROSTATIC DISORDER
     Dosage: 5 MG, DAILY
  4. DIGOXIN [Concomitant]
     Indication: CARDIAC DISORDER
     Dosage: 0.125 MG, DAILY

REACTIONS (3)
  - CYSTITIS [None]
  - PYREXIA [None]
  - DIARRHOEA [None]
